FAERS Safety Report 9012600 (Version 1)
Quarter: 2013Q1

REPORT INFORMATION
  Report Type: Spontaneous
  Country: US (occurrence: US)
  Receive Date: 20130114
  Receipt Date: 20130114
  Transmission Date: 20140127
  Serious: Yes (Other)
  Sender: FDA-Public Use
  Company Number: US-ASTRAZENECA-2013SE01795

PATIENT
  Sex: Female

DRUGS (3)
  1. TOPROL XL [Suspect]
     Route: 048
  2. CORTISONE [Suspect]
     Route: 065
  3. AMIODARONE [Suspect]
     Route: 065

REACTIONS (11)
  - Catatonia [Unknown]
  - Malaise [Recovered/Resolved]
  - Delirium [Recovered/Resolved]
  - Eating disorder [Recovered/Resolved]
  - Blood count abnormal [Recovered/Resolved]
  - Blood glucose abnormal [Unknown]
  - Immune system disorder [Unknown]
  - Blood magnesium decreased [Unknown]
  - Blood potassium decreased [Unknown]
  - Disorientation [Unknown]
  - Asthenia [Recovered/Resolved]
